FAERS Safety Report 8260001-2 (Version None)
Quarter: 2012Q2

REPORT INFORMATION
  Report Type: 
  Country: None (occurrence: None)
  Receive Date: 20120404
  Receipt Date: 20120327
  Transmission Date: 20120825
  Serious: Yes (Hospitalization)
  Sender: FDA-Public Use
  Company Number: JP-JNJFOC-20110401154

PATIENT
  Sex: Female
  Weight: 13 kg

DRUGS (12)
  1. LEVOTHYROXINE SODIUM [Concomitant]
     Indication: HYPOTHYROIDISM
     Route: 048
     Dates: start: 20100604
  2. FLURBIPROFEN [Concomitant]
     Indication: GENERAL ANAESTHESIA
     Route: 065
  3. RISPERDAL [Suspect]
     Indication: HYPERKINESIA
     Route: 048
     Dates: start: 20110215, end: 20110317
  4. RISPERDAL [Suspect]
     Indication: AUTISM SPECTRUM DISORDER
     Route: 048
     Dates: start: 20110215, end: 20110317
  5. LEVOTHYROXINE SODIUM [Concomitant]
     Route: 048
     Dates: start: 20091116, end: 20100603
  6. PROPOFOL [Concomitant]
     Indication: GENERAL ANAESTHESIA
     Route: 065
     Dates: start: 20110202, end: 20110202
  7. ULTIVA [Concomitant]
     Indication: GENERAL ANAESTHESIA
     Route: 042
     Dates: start: 20110202, end: 20110202
  8. FENTANYL CITRATE [Concomitant]
     Indication: GENERAL ANAESTHESIA
     Route: 065
     Dates: start: 20110202, end: 20110202
  9. VECURONIUM BROMIDE [Concomitant]
     Indication: GENERAL ANAESTHESIA
     Route: 065
  10. RISPERDAL [Suspect]
     Indication: PRODUCT USED FOR UNKNOWN INDICATION
     Route: 048
     Dates: start: 20110201
  11. ATROPINE [Concomitant]
     Indication: GENERAL ANAESTHESIA
     Route: 065
  12. NEOSTIGMINE METHYLSULFATE-ATROPINE SULFATE HYDRATE [Concomitant]
     Indication: GENERAL ANAESTHESIA
     Route: 065

REACTIONS (1)
  - BLOOD OSMOLARITY INCREASED [None]
